FAERS Safety Report 8375989-9 (Version None)
Quarter: 2012Q2

REPORT INFORMATION
  Report Type: 
  Country: None (occurrence: None)
  Receive Date: 20120522
  Receipt Date: 20120515
  Transmission Date: 20120825
  Serious: Yes (Other)
  Sender: FDA-Public Use
  Company Number: GR-UCBSA-057470

PATIENT
  Age: 50 Year
  Sex: Male

DRUGS (2)
  1. VIMPAT [Suspect]
     Indication: PARTIAL SEIZURES
     Dosage: INITIATION DOSE, PER OS
     Route: 048
  2. OXCARBAZEPINE [Concomitant]
     Indication: PARTIAL SEIZURES
     Dosage: DURATION MORE THAN 2 YEARS

REACTIONS (2)
  - HALLUCINATION [None]
  - DELIRIUM [None]
